FAERS Safety Report 4579228-6 (Version None)
Quarter: 2005Q1

REPORT INFORMATION
  Report Type: 
  Country: None (occurrence: None)
  Receive Date: 20050209
  Receipt Date: 20050209
  Transmission Date: 20050727
  Serious: Yes (Life-Threatening)
  Sender: FDA-Public Use
  Company Number: None

PATIENT
  Age: 78 Year
  Sex: Male
  Weight: 94.3482 kg

DRUGS (5)
  1. ENBREL [Suspect]
     Indication: RHEUMATOID ARTHRITIS
     Dosage: 25 MG SQ 2X / WEEK
     Route: 058
  2. HYZAAR [Concomitant]
  3. VERELAN [Concomitant]
  4. ACTOS [Concomitant]
  5. LIPITOR [Concomitant]

REACTIONS (1)
  - NON-SMALL CELL LUNG CANCER STAGE I [None]
